APPROVED DRUG PRODUCT: TEPYLUTE
Active Ingredient: THIOTEPA
Strength: 100MG/10ML (10MG/ML)
Dosage Form/Route: SOLUTION;INTRAVENOUS
Application: N216984 | Product #002
Applicant: SHORLA PHARMA LTD
Approved: Feb 26, 2025 | RLD: Yes | RS: Yes | Type: RX

PATENTS:
Patent 11975013 | Expires: Aug 16, 2041